FAERS Safety Report 4889556-2 (Version None)
Quarter: 2006Q1

REPORT INFORMATION
  Report Type: 
  Country: None (occurrence: None)
  Receive Date: 20060120
  Receipt Date: 20060120
  Transmission Date: 20060701
  Serious: Yes (Other)
  Sender: FDA-Public Use
  Company Number: None

PATIENT
  Age: 27 Year
  Sex: Male
  Weight: 154.223 kg

DRUGS (1)
  1. LARIAM [Suspect]
     Indication: MALARIA PROPHYLAXIS
     Dosage: ONE 250 MG PILL ONCE A WEEK PO
     Route: 048
     Dates: start: 20060105, end: 20060112

REACTIONS (2)
  - ANXIETY [None]
  - PANIC DISORDER [None]
